FAERS Safety Report 7957238-6 (Version None)
Quarter: 2011Q4

REPORT INFORMATION
  Report Type: 
  Country: None (occurrence: None)
  Receive Date: 20111201
  Receipt Date: 20111116
  Transmission Date: 20120403
  Serious: Yes (Hospitalization, Other)
  Sender: FDA-Public Use
  Company Number: 1000025754

PATIENT
  Age: 80 Year
  Sex: Male

DRUGS (3)
  1. SINTROM [Suspect]
  2. ROFLUMILAST (ROFLUMILAST) (TABLETS) [Suspect]
  3. POLYMEDICATION (POLYMEDICATION) (POLYMEDICATION) [Concomitant]

REACTIONS (4)
  - RECTAL HAEMORRHAGE [None]
  - BLINDNESS UNILATERAL [None]
  - DRUG INTERACTION [None]
  - DIARRHOEA [None]
